FAERS Safety Report 17572777 (Version 1)
Quarter: 2020Q1

REPORT INFORMATION
  Report Type: Spontaneous
  Country: GR (occurrence: GR)
  Receive Date: 20200323
  Receipt Date: 20200323
  Transmission Date: 20200409
  Serious: Yes (Other)
  Sender: FDA-Public Use
  Company Number: GR-SHIRE-GR202009874

PATIENT

DRUGS (3)
  1. HYQVIA [Suspect]
     Active Substance: HUMAN IMMUNOGLOBULIN G\HYALURONIDASE RECOMBINANT HUMAN
     Dosage: 0.4 GRAM PER KILOGRAM (3RD COURSE)
     Route: 042
  2. HYQVIA [Suspect]
     Active Substance: HUMAN IMMUNOGLOBULIN G\HYALURONIDASE RECOMBINANT HUMAN
     Dosage: 0.4 GRAM PER KILOGRAM (2ND COURSE)
     Route: 042
  3. HYQVIA [Suspect]
     Active Substance: HUMAN IMMUNOGLOBULIN G\HYALURONIDASE RECOMBINANT HUMAN
     Indication: ENCEPHALITIS AUTOIMMUNE
     Dosage: 0.4 GRAM PER KILOGRAM (1ST COURSE)
     Route: 042

REACTIONS (9)
  - Bilirubin conjugated increased [Recovered/Resolved]
  - Haematocrit decreased [Recovered/Resolved]
  - Intentional product use issue [Unknown]
  - Blood bilirubin increased [Recovered/Resolved]
  - Haemolytic anaemia [Recovered/Resolved]
  - Blood bilirubin unconjugated increased [Recovered/Resolved]
  - Reticulocyte count increased [Recovered/Resolved]
  - Coombs direct test positive [Recovered/Resolved]
  - Haemoglobin decreased [Recovered/Resolved]
